FAERS Safety Report 6326215-3 (Version None)
Quarter: 2009Q3

REPORT INFORMATION
  Report Type: 
  Country: None (occurrence: None)
  Receive Date: 20090824
  Receipt Date: 20081111
  Transmission Date: 20100115
  Serious: Yes (Other)
  Sender: FDA-Public Use
  Company Number: GB-ELI_LILLY_AND_COMPANY-GB200811002516

PATIENT
  Sex: Male

DRUGS (2)
  1. STRATTERA [Suspect]
     Dosage: 25 MG, UNKNOWN
     Route: 048
  2. RISPERIDONE [Concomitant]
     Dosage: 0.5 MG, UNKNOWN
     Route: 065

REACTIONS (10)
  - ALTERED STATE OF CONSCIOUSNESS [None]
  - CYANOSIS [None]
  - DRUG INTERACTION [None]
  - HYPOTONIA [None]
  - LOSS OF CONSCIOUSNESS [None]
  - NEUROLEPTIC MALIGNANT SYNDROME [None]
  - PALLOR [None]
  - REPETITIVE SPEECH [None]
  - SCREAMING [None]
  - SYNCOPE [None]
